FAERS Safety Report 8014750-1 (Version None)
Quarter: 2011Q4

REPORT INFORMATION
  Report Type: 
  Country: None (occurrence: None)
  Receive Date: 20111229
  Receipt Date: 20111222
  Transmission Date: 20120403
  Serious: Yes (Death, Disabling)
  Sender: FDA-Public Use
  Company Number: JP-CELGENEUS-087-21880-11070067

PATIENT
  Sex: Male

DRUGS (39)
  1. REVLIMID [Suspect]
     Dosage: 25 MILLIGRAM
     Route: 048
     Dates: start: 20110401, end: 20110421
  2. ALLOPURINOL [Concomitant]
     Dosage: 200 MILLIGRAM
     Route: 048
     Dates: start: 20110304
  3. ZOMETA [Concomitant]
     Dosage: 4 MILLIGRAM
     Route: 041
     Dates: start: 20110531, end: 20110531
  4. NOVOLIN R [Concomitant]
     Dosage: 1ST
     Route: 058
     Dates: start: 20110506, end: 20110507
  5. DEXAMETHASONE ACETATE [Suspect]
     Dosage: 20 MILLIGRAM
     Route: 048
     Dates: start: 20110401, end: 20110422
  6. DEXAMETHASONE ACETATE [Suspect]
     Dosage: 20 MILLIGRAM
     Route: 048
     Dates: start: 20110429, end: 20110520
  7. NOVOLIN R [Concomitant]
     Dosage: 1ST
     Route: 058
     Dates: start: 20110520, end: 20110521
  8. METHYCOBAL [Concomitant]
     Dosage: UG
     Route: 048
     Dates: start: 20110304
  9. ALLOPURINOL [Concomitant]
     Dosage: 200 MILLIGRAM
     Route: 048
     Dates: start: 20110401
  10. MEXITIL [Concomitant]
     Dosage: 150 MILLIGRAM
     Route: 048
     Dates: start: 20110526, end: 20110531
  11. FENTANYL [Concomitant]
     Dosage: .15 MILLIGRAM
     Route: 058
     Dates: start: 20110620, end: 20110703
  12. LANIRAPID [Concomitant]
     Dosage: .1 MILLIGRAM
     Route: 048
     Dates: start: 20110401
  13. ZOMETA [Concomitant]
     Dosage: 4 MILLIGRAM
     Route: 041
     Dates: start: 20110310, end: 20110310
  14. HUMULIN R [Concomitant]
     Dosage: 12 IU (INTERNATIONAL UNIT)
     Route: 058
     Dates: start: 20110318, end: 20110319
  15. BASEN OD [Concomitant]
     Indication: DIABETES MELLITUS
     Dosage: .9 MILLIGRAM
     Route: 048
     Dates: start: 20110304
  16. REMERON [Concomitant]
     Dosage: 15 MILLIGRAM
     Route: 048
     Dates: start: 20110526, end: 20110616
  17. OXINORM [Concomitant]
     Dosage: 1 PACK
     Route: 048
     Dates: start: 20110527, end: 20110617
  18. REVLIMID [Suspect]
     Indication: MULTIPLE MYELOMA
     Dosage: 25 MILLIGRAM
     Route: 048
     Dates: start: 20110304, end: 20110324
  19. REVLIMID [Suspect]
     Dosage: 25 MILLIGRAM
     Route: 048
     Dates: start: 20110429, end: 20110512
  20. LANIRAPID [Concomitant]
     Dosage: .1 MILLIGRAM
     Route: 048
     Dates: start: 20110304
  21. WARFARIN SODIUM [Concomitant]
     Dosage: 2 MILLIGRAM
     Route: 048
     Dates: start: 20110401
  22. METHYCOBAL [Concomitant]
     Dosage: UG
     Route: 048
     Dates: start: 20110401
  23. GABAPENTIN [Concomitant]
     Dosage: 1200 MILLIGRAM
     Route: 048
     Dates: start: 20110401
  24. AMARYL [Concomitant]
     Indication: DIABETES MELLITUS
     Dosage: 1 MILLIGRAM
     Route: 048
     Dates: start: 20110304
  25. PYRINAZIN [Concomitant]
     Dosage: 1.5 GRAM
     Route: 048
     Dates: start: 20110526, end: 20110616
  26. REVLIMID [Suspect]
     Dosage: 20 MILLIGRAM
     Route: 048
     Dates: start: 20110526, end: 20110602
  27. WARFARIN SODIUM [Concomitant]
     Indication: PROPHYLAXIS
     Dosage: 2 MILLIGRAM
     Route: 048
     Dates: start: 20110304
  28. ZOMETA [Concomitant]
     Dosage: 4 MILLIGRAM
     Route: 041
     Dates: start: 20110512
  29. HUMULIN R [Concomitant]
     Indication: DIABETES MELLITUS
     Dosage: 36 IU (INTERNATIONAL UNIT)
     Route: 058
     Dates: start: 20110311, end: 20110312
  30. DEXAMETHASONE ACETATE [Suspect]
     Dosage: 20 MILLIGRAM
     Route: 048
     Dates: start: 20110531, end: 20110614
  31. RABEPRAZOLE SODIUM [Concomitant]
     Dosage: 10 MILLIGRAM
     Route: 048
     Dates: start: 20110304
  32. GABAPENTIN [Concomitant]
     Dosage: 1200 MILLIGRAM
     Route: 048
     Dates: start: 20110304
  33. NOVOLIN R [Concomitant]
     Dosage: 1ST
     Route: 058
     Dates: start: 20110513, end: 20110514
  34. OXYCONTIN [Concomitant]
     Dosage: 10 MILLIGRAM
     Route: 048
     Dates: start: 20110605, end: 20110617
  35. FENTANYL [Concomitant]
     Dosage: .1 MILLIGRAM
     Route: 058
     Dates: start: 20110617, end: 20110619
  36. REVLIMID [Suspect]
     Dosage: 10 MILLIGRAM
     Route: 048
     Dates: start: 20110603, end: 20110613
  37. DEXAMETHASONE ACETATE [Suspect]
     Indication: MULTIPLE MYELOMA
     Dosage: 20 MILLIGRAM
     Route: 048
     Dates: start: 20110304, end: 20110325
  38. RABEPRAZOLE SODIUM [Concomitant]
     Dosage: 10 MILLIGRAM
     Route: 048
     Dates: start: 20110401
  39. NOVOLIN R [Concomitant]
     Indication: DIABETES MELLITUS
     Dosage: 1ST
     Route: 058
     Dates: start: 20110429, end: 20110430

REACTIONS (4)
  - SEPSIS [None]
  - RENAL DISORDER [None]
  - NEUTROPHIL COUNT DECREASED [None]
  - MULTIPLE MYELOMA [None]
